FAERS Safety Report 21556981 (Version 2)
Quarter: 2022Q4

REPORT INFORMATION
  Report Type: Report from Study
  Country: US (occurrence: US)
  Receive Date: 20221104
  Receipt Date: 20221122
  Transmission Date: 20230112
  Serious: Yes (Death, Hospitalization, Other)
  Sender: FDA-Public Use
  Company Number: US-BRISTOL-MYERS SQUIBB COMPANY-2022-132209

PATIENT
  Age: 69 Year
  Sex: Female
  Weight: 54.7 kg

DRUGS (34)
  1. IPILIMUMAB [Suspect]
     Active Substance: IPILIMUMAB
     Indication: Small cell lung cancer
     Route: 042
     Dates: start: 20221012, end: 20221012
  2. NIVOLUMAB [Suspect]
     Active Substance: NIVOLUMAB
     Indication: Small cell lung cancer
     Route: 042
     Dates: start: 20221012, end: 20221012
  3. PLINABULIN [Suspect]
     Active Substance: PLINABULIN
     Indication: Small cell lung cancer
     Route: 042
     Dates: start: 20221012, end: 20221012
  4. ACETAMINOPHEN [Concomitant]
     Active Substance: ACETAMINOPHEN
     Indication: Pain
     Dosage: FREQUENCY: PRN
     Route: 048
     Dates: start: 20161218, end: 20221114
  5. ALBUTEROL [Concomitant]
     Active Substance: ALBUTEROL
     Indication: Dyspnoea
     Dosage: FREQUENCY: PRN
     Route: 055
     Dates: start: 20161218, end: 20221114
  6. ALBUTEROL [Concomitant]
     Active Substance: ALBUTEROL
     Indication: Wheezing
  7. AMLODIPINE [Concomitant]
     Active Substance: AMLODIPINE BESYLATE
     Indication: Hypertension
     Dosage: FREQUENCY: DAILY
     Route: 048
     Dates: start: 20221006, end: 20221024
  8. WELLBUTRIN [Concomitant]
     Active Substance: BUPROPION HYDROCHLORIDE
     Indication: Adjustment disorder with depressed mood
     Dosage: FREQUENCY: DAILY
     Route: 048
     Dates: start: 20180406, end: 20221114
  9. CYCLOSPORINE [Concomitant]
     Active Substance: CYCLOSPORINE
     Indication: Dry eye
     Dosage: FREQUENCY: DAILY
     Route: 031
     Dates: start: 20200309, end: 20221114
  10. DICLOFENAC [Concomitant]
     Active Substance: DICLOFENAC
     Indication: Back pain
     Dosage: ROUTE: DERMAL
     Route: 061
     Dates: start: 20220615, end: 20221114
  11. DILTIAZEM [Concomitant]
     Active Substance: DILTIAZEM
     Indication: Supraventricular tachycardia
     Dosage: FREQUENCY: DAILY
     Route: 048
     Dates: start: 20220512, end: 20221114
  12. CYMBALTA [Concomitant]
     Active Substance: DULOXETINE HYDROCHLORIDE
     Indication: Neuralgia
     Dosage: FREQUENCY: DAILY
     Route: 048
     Dates: start: 20180716, end: 20221114
  13. CYMBALTA [Concomitant]
     Active Substance: DULOXETINE HYDROCHLORIDE
     Indication: Anxiety
  14. DILAUDID [Concomitant]
     Active Substance: HYDROMORPHONE HYDROCHLORIDE
     Indication: Cancer pain
     Dosage: FREQUENCY: PRN
     Route: 048
     Dates: start: 20160928, end: 20221114
  15. ATARAX [Concomitant]
     Active Substance: HYDROXYZINE HYDROCHLORIDE
     Indication: Muscle spasms
     Dosage: FREQUENCY: HS PRN
     Route: 048
     Dates: start: 20211119, end: 20221114
  16. SYNTHROID [Concomitant]
     Active Substance: LEVOTHYROXINE SODIUM
     Indication: Hypothyroidism
     Dosage: FREQUENCY: DAILY
     Route: 048
     Dates: start: 20210707, end: 20221117
  17. IMODIUM [Concomitant]
     Active Substance: LOPERAMIDE HYDROCHLORIDE
     Indication: Diarrhoea
     Dosage: FREQUENCY: PRN
     Route: 048
     Dates: start: 20221012, end: 20221114
  18. ATIVAN [Concomitant]
     Active Substance: LORAZEPAM
     Indication: Insomnia
     Dosage: FREQUENCY: PRN
     Route: 048
     Dates: start: 20171108, end: 20221114
  19. ATIVAN [Concomitant]
     Active Substance: LORAZEPAM
     Indication: Anxiety
  20. DOLOPHINE [Concomitant]
     Active Substance: METHADONE HYDROCHLORIDE
     Indication: Cancer pain
     Route: 048
     Dates: start: 20170323, end: 20221114
  21. REMERON [Concomitant]
     Active Substance: MIRTAZAPINE
     Indication: Major depression
     Dosage: FREQUENCY: HS
     Route: 048
     Dates: start: 20180702, end: 20221114
  22. ZYPREXA [Concomitant]
     Active Substance: OLANZAPINE
     Indication: Anxiety
     Dosage: FREQUENCY: HS PRN
     Route: 048
     Dates: start: 20210525, end: 20221114
  23. ZOFRAN [Concomitant]
     Active Substance: ONDANSETRON HYDROCHLORIDE
     Indication: Nausea
     Dosage: FREQUENCY: PRN
     Route: 048
     Dates: start: 20220801, end: 20221114
  24. OMEPRAZOLE [Concomitant]
     Active Substance: OMEPRAZOLE
     Indication: Gastrooesophageal reflux disease
     Dosage: FREQUENCY: DAILY
     Route: 048
     Dates: start: 20180312, end: 20221114
  25. PROCHLORPERAZINE EDISYLATE [Concomitant]
     Active Substance: PROCHLORPERAZINE EDISYLATE
     Indication: Nausea
     Dosage: FREQUENCY: PRN
     Route: 048
     Dates: start: 20221012, end: 20221114
  26. PROCHLORPERAZINE EDISYLATE [Concomitant]
     Active Substance: PROCHLORPERAZINE EDISYLATE
     Indication: Vomiting
  27. VITAMIN D3 [Concomitant]
     Active Substance: CHOLECALCIFEROL
     Indication: Hypovitaminosis
     Dosage: FREQUENCY: DAILY
     Route: 048
     Dates: start: 20200809, end: 20221114
  28. OXYCONTIN [Concomitant]
     Active Substance: OXYCODONE HYDROCHLORIDE
     Indication: Cancer pain
     Route: 048
     Dates: start: 20220301, end: 20221114
  29. SODIUM CHLORIDE [Concomitant]
     Active Substance: SODIUM CHLORIDE
     Indication: Dehydration
     Dosage: FREQUENCY: ONCE
     Route: 042
     Dates: start: 20221020, end: 20221020
  30. DILAUDID [Concomitant]
     Active Substance: HYDROMORPHONE HYDROCHLORIDE
     Indication: Pain
     Dosage: FREQUENCY: ONCE
     Route: 042
     Dates: start: 20221020, end: 20221020
  31. DILAUDID [Concomitant]
     Active Substance: HYDROMORPHONE HYDROCHLORIDE
     Dosage: DOSE: 0.2-0.5 MG, FREQUENCY: PRN
     Route: 042
     Dates: start: 20221025, end: 20221117
  32. ALBUTEROL\IPRATROPIUM [Concomitant]
     Active Substance: ALBUTEROL\IPRATROPIUM
     Indication: Dyspnoea
     Dosage: DOSE: 0.5/2.5 MG, FREQUENCY: ONCE
     Route: 055
     Dates: start: 20221020, end: 20221020
  33. ALBUTEROL\IPRATROPIUM [Concomitant]
     Active Substance: ALBUTEROL\IPRATROPIUM
     Indication: Wheezing
  34. MAGNESIUM SULFATE [Concomitant]
     Active Substance: MAGNESIUM SULFATE
     Indication: Hypomagnesaemia
     Dosage: FREQUENCY: ONCE
     Route: 042
     Dates: start: 20221020, end: 20221020

REACTIONS (3)
  - Respiratory failure [Fatal]
  - COVID-19 pneumonia [Fatal]
  - Sepsis [Unknown]

NARRATIVE: CASE EVENT DATE: 20221024
